FAERS Safety Report 9782286 (Version 6)
Quarter: 2015Q1

REPORT INFORMATION
  Report Type: Report from Study
  Country: CA (occurrence: CA)
  Receive Date: 20131226
  Receipt Date: 20150210
  Transmission Date: 20150721
  Serious: Yes (Death, Life-Threatening, Hospitalization, Other)
  Sender: FDA-Public Use
  Company Number: CA-JNJFOC-20131215022

PATIENT
  Age: 34 Year
  Sex: Male
  Weight: 84 kg

DRUGS (24)
  1. IMURAN [Concomitant]
     Active Substance: AZATHIOPRINE
     Route: 048
  2. REMICADE [Suspect]
     Active Substance: INFLIXIMAB
     Indication: CROHN^S DISEASE
     Route: 042
  3. REMICADE [Suspect]
     Active Substance: INFLIXIMAB
     Indication: CROHN^S DISEASE
     Dosage: 5 MG/KG DOSE
     Route: 042
     Dates: start: 20131223
  4. REMICADE [Suspect]
     Active Substance: INFLIXIMAB
     Indication: CROHN^S DISEASE
     Dosage: 10 MG/KG DOSE
     Route: 042
     Dates: start: 2006
  5. ATARAX [Concomitant]
     Active Substance: HYDROXYZINE\HYDROXYZINE HYDROCHLORIDE
     Indication: PREMEDICATION
     Route: 048
  6. REMICADE [Suspect]
     Active Substance: INFLIXIMAB
     Indication: PROCTOCOLECTOMY
     Route: 042
     Dates: start: 2006
  7. REMICADE [Suspect]
     Active Substance: INFLIXIMAB
     Indication: PYODERMA GANGRENOSUM
     Route: 042
  8. ACCOLATE [Concomitant]
     Active Substance: ZAFIRLUKAST
     Indication: PREMEDICATION
     Route: 048
  9. REMICADE [Suspect]
     Active Substance: INFLIXIMAB
     Indication: CROHN^S DISEASE
     Route: 042
     Dates: end: 20140226
  10. REMICADE [Suspect]
     Active Substance: INFLIXIMAB
     Indication: CROHN^S DISEASE
     Route: 042
     Dates: start: 2006
  11. AZATHIOPRINE. [Suspect]
     Active Substance: AZATHIOPRINE
     Indication: SERONEGATIVE ARTHRITIS
     Route: 065
  12. AZATHIOPRINE. [Suspect]
     Active Substance: AZATHIOPRINE
     Indication: PYODERMA GANGRENOSUM
     Route: 065
  13. REMICADE [Suspect]
     Active Substance: INFLIXIMAB
     Indication: PYODERMA GANGRENOSUM
     Route: 042
     Dates: start: 2006
  14. REMICADE [Suspect]
     Active Substance: INFLIXIMAB
     Indication: PYODERMA GANGRENOSUM
     Dosage: 10 MG/KG DOSE
     Route: 042
     Dates: start: 2006
  15. REMICADE [Suspect]
     Active Substance: INFLIXIMAB
     Indication: PYODERMA GANGRENOSUM
     Dosage: 5 MG/KG DOSE
     Route: 042
     Dates: start: 20131223
  16. REMICADE [Suspect]
     Active Substance: INFLIXIMAB
     Indication: PROCTOCOLECTOMY
     Route: 042
  17. REMICADE [Suspect]
     Active Substance: INFLIXIMAB
     Indication: PROCTOCOLECTOMY
     Route: 042
     Dates: start: 20080108
  18. REMICADE [Suspect]
     Active Substance: INFLIXIMAB
     Indication: PROCTOCOLECTOMY
     Route: 042
     Dates: end: 20140226
  19. REMICADE [Suspect]
     Active Substance: INFLIXIMAB
     Indication: PROCTOCOLECTOMY
     Dosage: 5 MG/KG DOSE
     Route: 042
     Dates: start: 20131223
  20. REMICADE [Suspect]
     Active Substance: INFLIXIMAB
     Indication: PYODERMA GANGRENOSUM
     Route: 042
     Dates: start: 20080108
  21. REMICADE [Suspect]
     Active Substance: INFLIXIMAB
     Indication: CROHN^S DISEASE
     Route: 042
     Dates: start: 20080108
  22. REMICADE [Suspect]
     Active Substance: INFLIXIMAB
     Indication: PROCTOCOLECTOMY
     Dosage: 10 MG/KG DOSE
     Route: 042
     Dates: start: 2006
  23. REMICADE [Suspect]
     Active Substance: INFLIXIMAB
     Indication: PYODERMA GANGRENOSUM
     Route: 042
     Dates: end: 20140226
  24. SOLU-CORTEF [Concomitant]
     Active Substance: HYDROCORTISONE SODIUM SUCCINATE
     Indication: PREMEDICATION
     Route: 042

REACTIONS (2)
  - Hepatocellular carcinoma [Fatal]
  - Product use issue [Unknown]

NARRATIVE: CASE EVENT DATE: 201309
